FAERS Safety Report 8561011 (Version 2)
Quarter: 2013Q1

REPORT INFORMATION
  Report Type: Spontaneous
  Country: US (occurrence: US)
  Receive Date: 20120514
  Receipt Date: 20130125
  Transmission Date: 20140127
  Serious: Yes (Hospitalization, Congenital Anomaly)
  Sender: FDA-Public Use
  Company Number: US-GLAXOSMITHKLINE-A0977189A

PATIENT
  Age: 0 Year
  Sex: Male
  Weight: 3.2 kg

DRUGS (4)
  1. PAXIL [Suspect]
     Indication: DEPRESSION
     Dosage: 20MG PER DAY
     Route: 064
     Dates: start: 19990130
  2. PROZAC [Concomitant]
     Dates: start: 19991015
  3. CEFTIN [Concomitant]
  4. AMITRIPTYLINE [Concomitant]
     Dates: start: 19990130

REACTIONS (4)
  - Cleft lip and palate [Unknown]
  - Microsomia [Unknown]
  - Congenital anomaly [Unknown]
  - Foetal exposure during pregnancy [Unknown]
